FAERS Safety Report 22137269 (Version 2)
Quarter: 2024Q4

REPORT INFORMATION
  Report Type: Report from Study
  Country: DE (occurrence: DE)
  Receive Date: 20230325
  Receipt Date: 20241104
  Transmission Date: 20250115
  Serious: Yes (Hospitalization, Other)
  Sender: AUROBINDO
  Company Number: DE-DEXPHARM-20230511

PATIENT
  Age: 53 Year
  Sex: Female

DRUGS (1)
  1. VENLAFAXINE [Suspect]
     Active Substance: VENLAFAXINE HYDROCHLORIDE
     Indication: Product used for unknown indication
     Dosage: UNK
     Route: 065

REACTIONS (4)
  - Seizure [Unknown]
  - Hypoglycaemia [Unknown]
  - Somnolence [Unknown]
  - Overdose [Unknown]
